FAERS Safety Report 5304390-7 (Version None)
Quarter: 2007Q2

REPORT INFORMATION
  Report Type: 
  Country: None (occurrence: None)
  Receive Date: 20070423
  Receipt Date: 20070413
  Transmission Date: 20071010
  Serious: Yes (Death, Hospitalization)
  Sender: FDA-Public Use
  Company Number: US-AVENTIS-200712631US

PATIENT
  Sex: Female

DRUGS (3)
  1. LOVENOX [Suspect]
     Route: 051
  2. PLAVIX [Suspect]
     Dosage: DOSE: UNK
  3. LASIX [Concomitant]
     Dosage: DOSE: UNK

REACTIONS (2)
  - AORTIC ANEURYSM [None]
  - CHEST PAIN [None]
